FAERS Safety Report 9298228 (Version 3)
Quarter: 2013Q4

REPORT INFORMATION
  Report Type: Spontaneous
  Country: US (occurrence: None)
  Receive Date: 20121227
  Receipt Date: 20131226
  Transmission Date: 20140711
  Serious: Yes (Other)
  Sender: FDA-Public Use
  Company Number: PHEH2012US013189

PATIENT
  Age: 25 Year
  Sex: Female

DRUGS (8)
  1. AFINITOR [Suspect]
     Indication: TUBEROUS SCLEROSIS
     Route: 048
     Dates: start: 20120627, end: 20120703
  2. VITAMIN A [Concomitant]
  3. VITAMINS [Concomitant]
  4. PROBIOTICS [Concomitant]
  5. BETACAROTENE [Concomitant]
  6. HERBAL PREPARATION [Concomitant]
  7. HOMEOPATHIC PREPARATION [Concomitant]
  8. MARIJUANA [Concomitant]

REACTIONS (13)
  - Dizziness [None]
  - Oropharyngeal pain [None]
  - Oral pain [None]
  - Fatigue [None]
  - Decreased appetite [None]
  - Stomatitis [None]
  - Weight decreased [None]
  - Menstruation irregular [None]
  - Headache [None]
  - Bronchitis [None]
  - Cognitive disorder [None]
  - Staphylococcal infection [None]
  - Nasopharyngitis [None]
